FAERS Safety Report 21582193 (Version 1)
Quarter: 2022Q4

REPORT INFORMATION
  Report Type: Report from Study
  Country: CA (occurrence: CA)
  Receive Date: 20221111
  Receipt Date: 20221111
  Transmission Date: 20230113
  Serious: Yes (Other)
  Sender: FDA-Public Use
  Company Number: CA-ABBVIE-4194308

PATIENT
  Sex: Female

DRUGS (1)
  1. RINVOQ [Suspect]
     Active Substance: UPADACITINIB
     Indication: Dermatitis atopic
     Dosage: FORM STRENGTH: 15 MG
     Route: 048
     Dates: start: 20220121

REACTIONS (4)
  - Neoplasm malignant [Unknown]
  - Arthralgia [Unknown]
  - Angina pectoris [Unknown]
  - Back pain [Unknown]

NARRATIVE: CASE EVENT DATE: 20220101
